FAERS Safety Report 7691842-8 (Version None)
Quarter: 2011Q3

REPORT INFORMATION
  Report Type: 
  Country: None (occurrence: None)
  Receive Date: 20110818
  Receipt Date: 20110808
  Transmission Date: 20111222
  Serious: Yes (Life-Threatening, Hospitalization, Other)
  Sender: FDA-Public Use
  Company Number: GB-JNJFOC-20110709276

PATIENT
  Sex: Female

DRUGS (3)
  1. XARELTO [Suspect]
     Indication: HIP SURGERY
     Route: 048
     Dates: start: 20110714, end: 20110715
  2. PIPERACILLIN AND TAZOBACTAM [Concomitant]
  3. XARELTO [Suspect]
     Indication: EMBOLISM VENOUS
     Route: 048
     Dates: start: 20110714, end: 20110715

REACTIONS (2)
  - POST PROCEDURAL PNEUMONIA [None]
  - RENAL DISORDER [None]
